FAERS Safety Report 22718608 (Version 7)
Quarter: 2025Q1

REPORT INFORMATION
  Report Type: Spontaneous
  Country: US (occurrence: US)
  Receive Date: 20230718
  Receipt Date: 20250219
  Transmission Date: 20250408
  Serious: Yes (Other)
  Sender: SANOFI AVENTIS
  Company Number: US-SA-SAC20230717000762

PATIENT
  Age: 55 Year
  Sex: Female

DRUGS (35)
  1. DUPIXENT [Suspect]
     Active Substance: DUPILUMAB
     Indication: Asthma
     Dosage: 300 MG, QOW
     Route: 058
     Dates: start: 20230208
  2. ALBUTEROL SULFATE [Concomitant]
     Active Substance: ALBUTEROL SULFATE
  3. ALLOPURINOL [Concomitant]
     Active Substance: ALLOPURINOL
  4. ATIVAN [Concomitant]
     Active Substance: LORAZEPAM
  5. LIPITOR [Concomitant]
     Active Substance: ATORVASTATIN CALCIUM
  6. LOPID [Concomitant]
     Active Substance: GEMFIBROZIL
  7. METFORMIN [Concomitant]
     Active Substance: METFORMIN HYDROCHLORIDE
  8. MOTRIN IB [Concomitant]
     Active Substance: IBUPROFEN
  9. ONDANSETRON [Concomitant]
     Active Substance: ONDANSETRON
  10. SPIRIVA [Concomitant]
     Active Substance: TIOTROPIUM BROMIDE MONOHYDRATE
  11. SYMBICORT [Concomitant]
     Active Substance: BUDESONIDE\FORMOTEROL FUMARATE DIHYDRATE
  12. TRULICITY [Concomitant]
     Active Substance: DULAGLUTIDE
  13. VITAMIN D3 [Concomitant]
     Active Substance: CHOLECALCIFEROL
  14. CYCLOBENZAPRINE [Concomitant]
     Active Substance: CYCLOBENZAPRINE
  15. EPIPEN [Concomitant]
     Active Substance: EPINEPHRINE
  16. IRON [Concomitant]
     Active Substance: IRON
  17. CYANOCOBALAMIN [Concomitant]
     Active Substance: CYANOCOBALAMIN
  18. FENOFIBRATE [Concomitant]
     Active Substance: FENOFIBRATE
  19. CYANOCOBALAMIN [Concomitant]
     Active Substance: CYANOCOBALAMIN
  20. LOSARTAN POTASSIUM [Concomitant]
     Active Substance: LOSARTAN POTASSIUM
  21. SPIRIVA [Concomitant]
     Active Substance: TIOTROPIUM BROMIDE MONOHYDRATE
  22. MELOXICAM [Concomitant]
     Active Substance: MELOXICAM
  23. TRULICITY [Concomitant]
     Active Substance: DULAGLUTIDE
  24. MOTRIN [Concomitant]
     Active Substance: IBUPROFEN
  25. AZITHROMYCIN [Concomitant]
     Active Substance: AZITHROMYCIN
  26. MEDROXYPROGESTERONE ACETATE [Concomitant]
     Active Substance: MEDROXYPROGESTERONE ACETATE
  27. BUDESONIDE\FORMOTEROL [Concomitant]
     Active Substance: BUDESONIDE\FORMOTEROL
  28. ATORVASTATIN [Concomitant]
     Active Substance: ATORVASTATIN
  29. SPIRIVA [Concomitant]
     Active Substance: TIOTROPIUM BROMIDE MONOHYDRATE
  30. FLUTICASONE [Concomitant]
     Active Substance: FLUTICASONE
  31. BRIMONIDINE [Concomitant]
     Active Substance: BRIMONIDINE TARTRATE
  32. DORZOLAMIDE [Concomitant]
     Active Substance: DORZOLAMIDE
  33. HYDROCODONE BITARTRATE AND ACETAMINOPHEN [Concomitant]
     Active Substance: ACETAMINOPHEN\HYDROCODONE BITARTRATE
  34. LORAZEPAM [Concomitant]
     Active Substance: LORAZEPAM
  35. TAMSULOSIN [Concomitant]
     Active Substance: TAMSULOSIN

REACTIONS (6)
  - Nephrolithiasis [Recovered/Resolved]
  - Impaired quality of life [Recovered/Resolved]
  - COVID-19 [Unknown]
  - Asthma [Unknown]
  - Illness [Unknown]
  - Drug ineffective [Unknown]

NARRATIVE: CASE EVENT DATE: 20230101
